FAERS Safety Report 16675173 (Version 1)
Quarter: 2019Q3

REPORT INFORMATION
  Report Type: Spontaneous
  Country: US (occurrence: US)
  Receive Date: 20190806
  Receipt Date: 20190806
  Transmission Date: 20191004
  Serious: Yes (Death)
  Sender: FDA-Public Use
  Company Number: US-HAEMONETICS CORP-2072811

PATIENT
  Age: 62 Year
  Sex: Male
  Weight: 78.64 kg

DRUGS (1)
  1. HAEMONETICS ANTICOAGULANT SODIUM CITRATE [Suspect]
     Active Substance: TRISODIUM CITRATE DIHYDRATE
     Indication: APHERESIS
     Route: 042
     Dates: start: 20190630, end: 20190630

REACTIONS (1)
  - Death [Fatal]

NARRATIVE: CASE EVENT DATE: 20190701
